FAERS Safety Report 5415629-1 (Version None)
Quarter: 2007Q3

REPORT INFORMATION
  Report Type: 
  Country: None (occurrence: None)
  Receive Date: 20070713
  Receipt Date: 20070504
  Transmission Date: 20080115
  Serious: Yes (Other)
  Sender: FDA-Public Use
  Company Number: US-JNJFOC-20060904274

PATIENT
  Age: 36 Year
  Sex: Female
  Weight: 94.8018 kg

DRUGS (4)
  1. ORTHO EVRA [Suspect]
     Indication: CONTRACEPTION
     Dosage: 1 DOSE(S), TRANSDERMAL
     Route: 062
     Dates: start: 20050201
  2. TRAZODONE HCL [Concomitant]
  3. LEXAPRO [Concomitant]
  4. ZYRTEC [Concomitant]

REACTIONS (1)
  - DEEP VEIN THROMBOSIS [None]
